FAERS Safety Report 12938667 (Version 1)
Quarter: 2016Q4

REPORT INFORMATION
  Report Type: Spontaneous
  Country: US (occurrence: US)
  Receive Date: 20161115
  Receipt Date: 20161115
  Transmission Date: 20170207
  Serious: No
  Sender: FDA-Public Use
  Company Number: US-PFIZER INC-2016524510

PATIENT
  Sex: Female

DRUGS (2)
  1. XALKORI [Suspect]
     Active Substance: CRIZOTINIB
     Dosage: UNK
     Dates: start: 201501
  2. HYDROCHLOROTHIAZIDE. [Suspect]
     Active Substance: HYDROCHLOROTHIAZIDE
     Dosage: UNK

REACTIONS (1)
  - Dermatitis contact [Unknown]
